FAERS Safety Report 5236375-3 (Version None)
Quarter: 2007Q1

REPORT INFORMATION
  Report Type: 
  Country: None (occurrence: None)
  Receive Date: 20070208
  Receipt Date: 20070130
  Transmission Date: 20070707
  Serious: Yes (Death, Life-Threatening, Hospitalization)
  Sender: FDA-Public Use
  Company Number: 430001M07CAN

PATIENT
  Age: 32 Year
  Sex: Female

DRUGS (6)
  1. NOVANTRONE [Suspect]
     Indication: MULTIPLE SCLEROSIS
     Dosage: SEE IMAGE
     Dates: start: 20040301, end: 20040901
  2. NOVANTRONE [Suspect]
     Indication: MULTIPLE SCLEROSIS
     Dosage: SEE IMAGE
     Dates: start: 20040901, end: 20060601
  3. MIRTAZAPINE [Concomitant]
  4. DITROPAN (OXYBUTYNIN /00538901/) [Concomitant]
  5. EFFEXOR [Concomitant]
  6. MIRAPEX [Concomitant]

REACTIONS (22)
  - ABDOMINAL DISTENSION [None]
  - ANURIA [None]
  - BLOOD TEST ABNORMAL [None]
  - CARDIAC FAILURE [None]
  - CARDIOGENIC SHOCK [None]
  - CARDIOMEGALY [None]
  - CARDIOTOXICITY [None]
  - CONTINUOUS HAEMODIAFILTRATION [None]
  - DISSEMINATED INTRAVASCULAR COAGULATION [None]
  - GENERAL PHYSICAL HEALTH DETERIORATION [None]
  - LIVER FUNCTION TEST ABNORMAL [None]
  - MULTI-ORGAN FAILURE [None]
  - OEDEMA PERIPHERAL [None]
  - PALPITATIONS [None]
  - PLATELET COUNT DECREASED [None]
  - PROCEDURAL HYPOTENSION [None]
  - RENAL IMPAIRMENT [None]
  - TACHYCARDIA [None]
  - TACHYPNOEA [None]
  - UPPER RESPIRATORY TRACT INFECTION [None]
  - VASCULAR RESISTANCE SYSTEMIC INCREASED [None]
  - VENOUS PRESSURE JUGULAR INCREASED [None]
